FAERS Safety Report 9314337 (Version 2)
Quarter: 2013Q2

REPORT INFORMATION
  Report Type: Spontaneous
  Country: US (occurrence: None)
  Receive Date: 20130522
  Receipt Date: 20130522
  Transmission Date: 20140414
  Serious: Yes (Hospitalization)
  Sender: FDA-Public Use
  Company Number: ACO_36235_2013

PATIENT
  Age: 51 Year
  Sex: Female
  Weight: 53.1 kg

DRUGS (3)
  1. AMPYRA (DALFAMPRIDINE) TABLET, 10MG [Suspect]
     Indication: GAIT DISTURBANCE
     Route: 048
     Dates: start: 201207, end: 201207
  2. TYSABRI (NATALIZUMAB) [Concomitant]
  3. CITALOPRAM [Concomitant]

REACTIONS (3)
  - Multiple sclerosis relapse [None]
  - Insomnia [None]
  - Drug dose omission [None]
